FAERS Safety Report 9005014 (Version 1)
Quarter: 2013Q1

REPORT INFORMATION
  Report Type: Report from Study
  Country: US (occurrence: US)
  Receive Date: 20130109
  Receipt Date: 20130109
  Transmission Date: 20140127
  Serious: No
  Sender: FDA-Public Use
  Company Number: US-VERTEX PHARMACEUTICALS INC.-2013-000245

PATIENT
  Age: 42 Year
  Sex: Female
  Weight: 99 kg

DRUGS (14)
  1. VX-950 (TELAPREVIR) [Suspect]
     Indication: HEPATITIS C
     Dosage: 750 MG, TID
     Route: 048
  2. PEGASYS [Suspect]
     Indication: HEPATITIS C
  3. RIBAVIRIN [Suspect]
     Indication: HEPATITIS C
     Dosage: 200 MG, UNK
  4. OMEPRAZOLE [Concomitant]
     Dosage: 40 MG, UNK
  5. BUPROBAN [Concomitant]
     Dosage: 150 MG, UNK
  6. MICARDIS HCT [Concomitant]
     Dosage: 40/12.5
  7. POTASSIMIN [Concomitant]
     Dosage: 75 MG, UNK
  8. TYLENOL /00020001/ [Concomitant]
     Dosage: 325 MG, UNK
  9. IBUPROFEN                          /00109205/ [Concomitant]
     Dosage: 200 MG, UNK
  10. TRIAMTEREEN/HYDROCHLOOTTHIAZIDE [Concomitant]
     Dosage: 25-37.5
  11. MULTI CAP [Concomitant]
  12. TUCKS MEDICA PAD [Concomitant]
  13. TYLENOL SINUS                      /00446801/ [Concomitant]
  14. PEPTO BISMOL                       /00139305/ [Concomitant]

REACTIONS (14)
  - Dyspnoea exertional [Unknown]
  - Eye pain [Unknown]
  - Weight increased [Unknown]
  - Blepharospasm [Unknown]
  - Disturbance in attention [Unknown]
  - Nasopharyngitis [Unknown]
  - Faeces discoloured [Unknown]
  - Gastrooesophageal reflux disease [Unknown]
  - Pallor [Unknown]
  - Malaise [Unknown]
  - Fatigue [Unknown]
  - Dysgeusia [Unknown]
  - Haemorrhoids [Unknown]
  - Rectal haemorrhage [Unknown]
